FAERS Safety Report 6813210-0 (Version None)
Quarter: 2010Q2

REPORT INFORMATION
  Report Type: 
  Country: None (occurrence: None)
  Receive Date: 20100628
  Receipt Date: 20100614
  Transmission Date: 20101027
  Serious: Yes (Hospitalization)
  Sender: FDA-Public Use
  Company Number: 7008116

PATIENT
  Age: 55 Year
  Sex: Male

DRUGS (2)
  1. REBIF [Suspect]
     Indication: MULTIPLE SCLEROSIS
     Dosage: 44 MCG, 3 IN 1 WK, SUBCUTANEOUS
     Route: 058
     Dates: start: 20031016
  2. NIFEDICAL (NIFEDIPINE) [Concomitant]

REACTIONS (6)
  - ARTERY DISSECTION [None]
  - CEREBROVASCULAR ACCIDENT [None]
  - HEAD INJURY [None]
  - MALAISE [None]
  - OPTIC NEURITIS [None]
  - ROAD TRAFFIC ACCIDENT [None]
